FAERS Safety Report 6895522-8 (Version None)
Quarter: 2010Q3

REPORT INFORMATION
  Report Type: 
  Country: None (occurrence: None)
  Receive Date: 20100802
  Receipt Date: 20100726
  Transmission Date: 20110219
  Serious: Yes (Death, Hospitalization)
  Sender: FDA-Public Use
  Company Number: PHHY2008CA24606

PATIENT
  Sex: Male

DRUGS (3)
  1. SANDOSTATIN LAR [Suspect]
     Indication: METASTATIC NEOPLASM
     Dosage: 60 MG EVERY 4 WEEKS
     Route: 030
     Dates: start: 20060502, end: 20081209
  2. SANDOSTATIN [Suspect]
     Indication: METASTATIC NEOPLASM
     Dosage: UNK, BID
     Route: 058
     Dates: start: 20090101
  3. IRON [Concomitant]
     Dosage: 300 MG, TID
     Route: 065

REACTIONS (4)
  - GASTROINTESTINAL HAEMORRHAGE [None]
  - HAEMOGLOBIN DECREASED [None]
  - HAEMORRHAGE [None]
  - MALIGNANT NEOPLASM PROGRESSION [None]
